FAERS Safety Report 9130805 (Version 1)
Quarter: 2013Q1

REPORT INFORMATION
  Report Type: Spontaneous
  Country: US (occurrence: US)
  Receive Date: 20130301
  Receipt Date: 20130301
  Transmission Date: 20140127
  Serious: Yes (Other)
  Sender: FDA-Public Use
  Company Number: US-JNJFOC-20130213560

PATIENT
  Age: 22 Year
  Sex: Female

DRUGS (4)
  1. REMICADE [Suspect]
     Indication: CROHN^S DISEASE
     Dosage: SECOND INFUSION
     Route: 042
     Dates: start: 20130215
  2. REMICADE [Suspect]
     Indication: CROHN^S DISEASE
     Dosage: FIRST INFUSION
     Route: 042
     Dates: start: 20130201
  3. ZOFRAN [Concomitant]
     Indication: NAUSEA
     Route: 048
  4. BENADRYL [Concomitant]
     Indication: PREMEDICATION
     Route: 065

REACTIONS (8)
  - Dermatitis bullous [Not Recovered/Not Resolved]
  - Sluggishness [Not Recovered/Not Resolved]
  - Joint swelling [Not Recovered/Not Resolved]
  - Hypoaesthesia [Not Recovered/Not Resolved]
  - Hypokinesia [Not Recovered/Not Resolved]
  - Infusion related reaction [Not Recovered/Not Resolved]
  - Pain [Not Recovered/Not Resolved]
  - White blood cell count increased [Not Recovered/Not Resolved]
